FAERS Safety Report 14267228 (Version 1)
Quarter: 2017Q4

REPORT INFORMATION
  Report Type: Spontaneous
  Country: US (occurrence: US)
  Receive Date: 20171208
  Receipt Date: 20171208
  Transmission Date: 20180321
  Serious: Yes (Other)
  Sender: FDA-Public Use
  Company Number: None

PATIENT
  Sex: Male
  Weight: 76.5 kg

DRUGS (1)
  1. TRANSDERM SCOP [Suspect]
     Active Substance: SCOPOLAMINE
     Indication: MOTION SICKNESS
     Dosage: ?          OTHER FREQUENCY:HALF EVERY 3 DAYS;?
     Route: 062
     Dates: start: 20160105, end: 20170408

REACTIONS (2)
  - Rash [None]
  - Skin cancer [None]

NARRATIVE: CASE EVENT DATE: 20171208
